FAERS Safety Report 9866946 (Version 2)
Quarter: 2014Q1

REPORT INFORMATION
  Report Type: Spontaneous
  Country: US (occurrence: US)
  Receive Date: 20140204
  Receipt Date: 20140213
  Transmission Date: 20141002
  Serious: No
  Sender: FDA-Public Use
  Company Number: US-PFIZER INC-2014027607

PATIENT
  Sex: Female

DRUGS (1)
  1. XALATAN [Suspect]
     Dosage: UNK

REACTIONS (4)
  - Hypersensitivity [Unknown]
  - Eyelid oedema [Unknown]
  - Eye pruritus [Unknown]
  - Eyelid exfoliation [Unknown]
